FAERS Safety Report 21854565 (Version 2)
Quarter: 2023Q1

REPORT INFORMATION
  Report Type: Spontaneous
  Country: US (occurrence: US)
  Receive Date: 20230112
  Receipt Date: 20230223
  Transmission Date: 20230418
  Serious: Yes (Other)
  Sender: FDA-Public Use
  Company Number: US-Blueprint Medicines Corporation-SP-US-2023-000046

PATIENT
  Age: 68 Year
  Sex: Female

DRUGS (2)
  1. AYVAKIT [Suspect]
     Active Substance: AVAPRITINIB
     Indication: Systemic mastocytosis
     Dosage: TAKE 1 TABLET BY MOUTH DAILY ALONG WITH A 50MG FOR 75MG TOTAL
     Route: 048
     Dates: start: 20210714
  2. AYVAKIT [Suspect]
     Active Substance: AVAPRITINIB
     Dosage: TAKE 1 TABLET BY MOUTH DAILY ALONG WITH A 50MG FOR 75MG TOTAL
     Route: 048
     Dates: start: 20210714

REACTIONS (10)
  - Immunodeficiency [Not Recovered/Not Resolved]
  - Depressed mood [Not Recovered/Not Resolved]
  - Respiratory syncytial virus infection [Not Recovered/Not Resolved]
  - Secretion discharge [Not Recovered/Not Resolved]
  - Cough [Not Recovered/Not Resolved]
  - Fatigue [Not Recovered/Not Resolved]
  - Intervertebral disc protrusion [Not Recovered/Not Resolved]
  - Arthralgia [Not Recovered/Not Resolved]
  - Arthropathy [Not Recovered/Not Resolved]
  - Condition aggravated [Not Recovered/Not Resolved]

NARRATIVE: CASE EVENT DATE: 20221225
